FAERS Safety Report 12493804 (Version 1)
Quarter: 2016Q2

REPORT INFORMATION
  Report Type: Spontaneous
  Country: US (occurrence: US)
  Receive Date: 20160623
  Receipt Date: 20160623
  Transmission Date: 20160815
  Serious: No
  Sender: FDA-Public Use
  Company Number: US-VIVUS-2015V1000333

PATIENT
  Age: 66 Year
  Sex: Male
  Weight: 121.22 kg

DRUGS (4)
  1. TELMISARTAN TABLETS [Concomitant]
     Active Substance: TELMISARTAN
     Indication: HYPERTENSION
  2. ELIQUIS [Concomitant]
     Active Substance: APIXABAN
     Indication: THROMBOSIS
  3. STENDRA [Suspect]
     Active Substance: AVANAFIL
     Route: 065
     Dates: start: 20150613, end: 20150613
  4. STENDRA [Suspect]
     Active Substance: AVANAFIL
     Indication: ERECTILE DYSFUNCTION
     Route: 065
     Dates: start: 20150611, end: 20150611

REACTIONS (1)
  - Drug ineffective [Recovered/Resolved]

NARRATIVE: CASE EVENT DATE: 20150611
